FAERS Safety Report 8547831-4 (Version None)
Quarter: 2012Q3

REPORT INFORMATION
  Report Type: 
  Country: None (occurrence: None)
  Receive Date: 20120727
  Receipt Date: 20120228
  Transmission Date: 20120928
  Serious: Yes (Hospitalization)
  Sender: FDA-Public Use
  Company Number: US-ASTRAZENECA-2012SE14036

PATIENT
  Age: 51 Year
  Sex: Female
  Weight: 68 kg

DRUGS (7)
  1. SEROQUEL XR [Suspect]
     Indication: BIPOLAR II DISORDER
     Route: 048
  2. COGENTIN [Suspect]
  3. SYNTHROID [Suspect]
  4. SEROQUEL XR [Suspect]
     Indication: DEPRESSION
     Route: 048
  5. KLONOPIN [Suspect]
  6. WELLBUTRIN [Suspect]
  7. CYMBALTA [Suspect]

REACTIONS (1)
  - DEPRESSION [None]
